FAERS Safety Report 9454005 (Version 1)
Quarter: 2013Q3

REPORT INFORMATION
  Report Type: Other
  Country: JP (occurrence: JP)
  Receive Date: 20130812
  Receipt Date: 20130812
  Transmission Date: 20140515
  Serious: Yes (Other)
  Sender: FDA-Public Use
  Company Number: JP-US-EMD SERONO, INC.-7227770

PATIENT
  Sex: Female
  Weight: 3 kg

DRUGS (1)
  1. CHORIOGONADOTROPIN ALFA [Suspect]
     Indication: OVARIAN FAILURE
     Route: 064

REACTIONS (3)
  - Haemorrhage intracranial [Recovered/Resolved]
  - Apnoea [Recovered/Resolved]
  - Foetal exposure during pregnancy [Recovered/Resolved]
